FAERS Safety Report 16856032 (Version 1)
Quarter: 2019Q3

REPORT INFORMATION
  Report Type: Spontaneous
  Country: US (occurrence: US)
  Receive Date: 20190926
  Receipt Date: 20190926
  Transmission Date: 20191005
  Serious: No
  Sender: FDA-Public Use
  Company Number: US-PFIZER INC-2019412054

PATIENT
  Sex: Female

DRUGS (3)
  1. SINEQUAN [Suspect]
     Active Substance: DOXEPIN HYDROCHLORIDE
     Dosage: 50 MG, UNK
  2. SINEQUAN [Suspect]
     Active Substance: DOXEPIN HYDROCHLORIDE
     Dosage: 100 MG, UNK
  3. DOXEPIN HCL [Suspect]
     Active Substance: DOXEPIN HYDROCHLORIDE
     Dosage: UNK

REACTIONS (2)
  - Nausea [Unknown]
  - Malaise [Unknown]
